FAERS Safety Report 5896210-7 (Version None)
Quarter: 2008Q3

REPORT INFORMATION
  Report Type: 
  Country: None (occurrence: None)
  Receive Date: 20080924
  Receipt Date: 20080911
  Transmission Date: 20090109
  Serious: Yes (Hospitalization)
  Sender: FDA-Public Use
  Company Number: AU-GENENTECH-249044

PATIENT
  Sex: Female

DRUGS (1)
  1. MABTHERA [Suspect]
     Indication: NON-HODGKIN'S LYMPHOMA

REACTIONS (4)
  - BURNING SENSATION [None]
  - PAIN IN EXTREMITY [None]
  - PERIPHERAL SENSORY NEUROPATHY [None]
  - TREMOR [None]
